FAERS Safety Report 6526561-4 (Version None)
Quarter: 2010Q1

REPORT INFORMATION
  Report Type: 
  Country: None (occurrence: None)
  Receive Date: 20100105
  Receipt Date: 20091223
  Transmission Date: 20100710
  Serious: Yes (Hospitalization)
  Sender: FDA-Public Use
  Company Number: PHHY2009US58282

PATIENT
  Sex: Male

DRUGS (1)
  1. EXJADE [Suspect]
     Dosage: 1500 (UNITS UNSPECIFIED) DAILY
     Route: 048

REACTIONS (2)
  - LOWER LIMB FRACTURE [None]
  - TREATMENT NONCOMPLIANCE [None]
